FAERS Safety Report 11416087 (Version 1)
Quarter: 2015Q3

REPORT INFORMATION
  Report Type: Spontaneous
  Country: US (occurrence: US)
  Receive Date: 20150825
  Receipt Date: 20150825
  Transmission Date: 20151125
  Serious: No
  Sender: FDA-Public Use
  Company Number: US-TEVA-538803USA

PATIENT
  Age: 56 Year
  Sex: Female
  Weight: 110.2 kg

DRUGS (21)
  1. NOVOLOG [Concomitant]
     Active Substance: INSULIN ASPART
     Dates: start: 2011
  2. PREVACID [Concomitant]
     Active Substance: LANSOPRAZOLE
     Dates: start: 201301
  3. MULTIVITAMINS W/MINERALS [Concomitant]
     Dates: start: 2011
  4. LEVOTHYROXINE. [Concomitant]
     Active Substance: LEVOTHYROXINE
     Dates: start: 2005
  5. ASPIRIN. [Concomitant]
     Active Substance: ASPIRIN
     Dates: start: 2010
  6. TRIAMCINOLONE [Concomitant]
     Active Substance: TRIAMCINOLONE
     Dates: start: 201409
  7. LANSOPRAZOLE. [Concomitant]
     Active Substance: LANSOPRAZOLE
     Dates: start: 201401
  8. POTASSIUM CITRATE. [Concomitant]
     Active Substance: POTASSIUM CITRATE
     Dates: start: 2010
  9. IRON [Concomitant]
     Active Substance: IRON
     Dates: start: 2012
  10. ZETIA [Concomitant]
     Active Substance: EZETIMIBE
     Dates: start: 2010
  11. SINGULAIR [Concomitant]
     Active Substance: MONTELUKAST SODIUM
     Dates: start: 201409
  12. FENOFIBRATE. [Concomitant]
     Active Substance: FENOFIBRATE
     Dates: start: 2012
  13. PREDNISONE. [Concomitant]
     Active Substance: PREDNISONE
     Dates: start: 1997
  14. LANTUS [Concomitant]
     Active Substance: INSULIN GLARGINE
     Dates: start: 2010
  15. TOPAMAX [Concomitant]
     Active Substance: TOPIRAMATE
     Dates: start: 2008
  16. PLAVIX [Concomitant]
     Active Substance: CLOPIDOGREL BISULFATE
     Dates: start: 2010
  17. HYDROXYCHLOROQUINE [Concomitant]
     Active Substance: HYDROXYCHLOROQUINE
     Dates: start: 20150109
  18. VITAMIN B12 [Concomitant]
     Active Substance: CYANOCOBALAMIN
     Dates: start: 2013
  19. FEXOFENADINE [Suspect]
     Active Substance: FEXOFENADINE\FEXOFENADINE HYDROCHLORIDE
     Indication: URTICARIA
     Dosage: 180 MILLIGRAM DAILY;
     Route: 048
     Dates: start: 201409
  20. METFORMIN [Concomitant]
     Active Substance: METFORMIN HYDROCHLORIDE
     Dates: start: 2005
  21. HYDROXYZINE [Concomitant]
     Active Substance: HYDROXYZINE\HYDROXYZINE HYDROCHLORIDE
     Dates: start: 201409

REACTIONS (2)
  - Somnolence [Not Recovered/Not Resolved]
  - Off label use [Unknown]

NARRATIVE: CASE EVENT DATE: 201409
